FAERS Safety Report 18194994 (Version 5)
Quarter: 2021Q1

REPORT INFORMATION
  Report Type: Spontaneous
  Country: US (occurrence: US)
  Receive Date: 20200825
  Receipt Date: 20210127
  Transmission Date: 20210419
  Serious: Yes (Other)
  Sender: FDA-Public Use
  Company Number: US-GILEAD-2020-0490991

PATIENT
  Sex: Male
  Weight: 64.85 kg

DRUGS (24)
  1. VIREAD [Suspect]
     Active Substance: TENOFOVIR DISOPROXIL FUMARATE
     Dosage: UNK
     Route: 048
     Dates: start: 2009
  2. MARINOL [ALLOPURINOL] [Concomitant]
     Active Substance: ALLOPURINOL
     Dosage: UNK
  3. VITAMIN D3 [Concomitant]
     Active Substance: CHOLECALCIFEROL
     Dosage: UNK
  4. TRIUMEQ [Concomitant]
     Active Substance: ABACAVIR SULFATE\DOLUTEGRAVIR SODIUM\LAMIVUDINE
     Dosage: UNK
  5. VIRAMUNE [Concomitant]
     Active Substance: NEVIRAPINE
  6. NORVIR [Concomitant]
     Active Substance: RITONAVIR
  7. ALBUTEROL HFA [Concomitant]
     Active Substance: ALBUTEROL SULFATE
  8. COMBIVIR [Concomitant]
     Active Substance: LAMIVUDINE\ZIDOVUDINE
  9. CALCIUM CARBONATE. [Concomitant]
     Active Substance: CALCIUM CARBONATE
  10. TRUVADA [Suspect]
     Active Substance: EMTRICITABINE\TENOFOVIR DISOPROXIL FUMARATE
     Dosage: UNK
     Route: 048
     Dates: start: 2009
  11. CORTISONE [Concomitant]
     Active Substance: CORTISONE
     Dosage: UNK
  12. VIREAD [Suspect]
     Active Substance: TENOFOVIR DISOPROXIL FUMARATE
     Indication: HIV INFECTION
     Dosage: UNK
     Route: 048
     Dates: start: 2002, end: 2009
  13. LEXAPRO [Concomitant]
     Active Substance: ESCITALOPRAM OXALATE
     Dosage: UNK
  14. ISENTRESS [Concomitant]
     Active Substance: RALTEGRAVIR POTASSIUM
  15. RETROVIR [Concomitant]
     Active Substance: ZIDOVUDINE
  16. NAPROSYN E [Concomitant]
     Active Substance: NAPROXEN
     Dosage: UNK
  17. EPZICOM [Concomitant]
     Active Substance: ABACAVIR SULFATE\LAMIVUDINE
  18. AMLODIPINE [Concomitant]
     Active Substance: AMLODIPINE BESYLATE
     Dosage: UNK
  19. ANTIVERT [DIHYDROERGOCRISTINE;LOMIFYLLINE] [Concomitant]
     Active Substance: DIHYDROERGOCRISTINE\LOMIFYLLINE
     Dosage: UNK
  20. TRUVADA [Suspect]
     Active Substance: EMTRICITABINE\TENOFOVIR DISOPROXIL FUMARATE
     Indication: HIV INFECTION
     Dosage: UNK
     Route: 048
     Dates: start: 2010, end: 2010
  21. FOSAMAX [Concomitant]
     Active Substance: ALENDRONATE SODIUM
     Dosage: UNK
  22. EPIVIR [Concomitant]
     Active Substance: LAMIVUDINE
     Dosage: UNK
  23. REYATAZ [Concomitant]
     Active Substance: ATAZANAVIR SULFATE
  24. VIRACEPT [Concomitant]
     Active Substance: NELFINAVIR MESYLATE

REACTIONS (7)
  - Osteoporosis [Not Recovered/Not Resolved]
  - Anxiety [Not Recovered/Not Resolved]
  - Osteonecrosis [Unknown]
  - Emotional distress [Not Recovered/Not Resolved]
  - Depression [Not Recovered/Not Resolved]
  - Pain [Not Recovered/Not Resolved]
  - Anhedonia [Not Recovered/Not Resolved]

NARRATIVE: CASE EVENT DATE: 2005
